FAERS Safety Report 4994116-9 (Version None)
Quarter: 2006Q2

REPORT INFORMATION
  Report Type: 
  Country: None (occurrence: None)
  Receive Date: 20060505
  Receipt Date: 20050621
  Transmission Date: 20061013
  Serious: Yes (Hospitalization, Disabling)
  Sender: FDA-Public Use
  Company Number: US-ROCHE-408667

PATIENT
  Age: 22 Year
  Sex: Female
  Weight: 64.9 kg

DRUGS (7)
  1. ACCUTANE [Suspect]
     Route: 048
     Dates: start: 19920708, end: 19921115
  2. ACCUTANE [Suspect]
     Route: 048
     Dates: start: 20000126, end: 20000622
  3. BIRTH CONTROL PILLS [Concomitant]
     Indication: ORAL CONTRACEPTION
     Route: 048
  4. ORTHO TRI-CYCLEN [Concomitant]
     Indication: CONTRACEPTION
     Dates: start: 19991012
  5. PHENERGAN HCL [Concomitant]
     Dosage: TAKEN EVERY 4-6 HOURS PRN.
     Dates: start: 19991012
  6. TYLENOL (CAPLET) [Concomitant]
     Dates: start: 20000107
  7. ZANTAC [Concomitant]
     Dates: start: 20000107

REACTIONS (57)
  - ABORTION SPONTANEOUS [None]
  - ADHESION [None]
  - ANXIETY [None]
  - BACK PAIN [None]
  - BLINDNESS [None]
  - CANDIDIASIS [None]
  - CHRONIC FATIGUE SYNDROME [None]
  - COLITIS [None]
  - COLITIS ULCERATIVE [None]
  - DEPRESSION [None]
  - DRUG EXPOSURE DURING PREGNANCY [None]
  - DRY SKIN [None]
  - ECZEMA [None]
  - FALLOPIAN TUBE DISORDER [None]
  - FATIGUE [None]
  - FIBROCYSTIC BREAST DISEASE [None]
  - FUNGAL INFECTION [None]
  - GALACTORRHOEA [None]
  - GASTRITIS [None]
  - GASTROINTESTINAL DISORDER [None]
  - GASTROOESOPHAGEAL REFLUX DISEASE [None]
  - HAEMATEMESIS [None]
  - HAEMORRHOIDS [None]
  - HEADACHE [None]
  - HELICOBACTER INFECTION [None]
  - HYDRONEPHROSIS [None]
  - INCISION SITE COMPLICATION [None]
  - INFECTION [None]
  - INFLAMMATORY BOWEL DISEASE [None]
  - INSOMNIA [None]
  - INTESTINAL HAEMORRHAGE [None]
  - IRRITABLE BOWEL SYNDROME [None]
  - LIP DRY [None]
  - MENORRHAGIA [None]
  - METRORRHAGIA [None]
  - NAUSEA [None]
  - NERVOUSNESS [None]
  - NIGHT BLINDNESS [None]
  - PELVIC INFLAMMATORY DISEASE [None]
  - PERIRECTAL ABSCESS [None]
  - POLYTRAUMATISM [None]
  - PROCTITIS [None]
  - RASH [None]
  - RECTAL HAEMORRHAGE [None]
  - RENAL DISORDER [None]
  - THIRST [None]
  - UMBILICAL HERNIA [None]
  - UPPER RESPIRATORY TRACT INFECTION [None]
  - URGE INCONTINENCE [None]
  - URINARY TRACT INFECTION [None]
  - URINE ODOUR ABNORMAL [None]
  - UTERINE LEIOMYOMA [None]
  - UTERINE PROLAPSE [None]
  - VAGINAL BURNING SENSATION [None]
  - VAGINAL DISCHARGE [None]
  - VOMITING [None]
  - WEIGHT DECREASED [None]
